FAERS Safety Report 6609713-4 (Version None)
Quarter: 2010Q1

REPORT INFORMATION
  Report Type: 
  Country: None (occurrence: None)
  Receive Date: 20100302
  Receipt Date: 20100222
  Transmission Date: 20100710
  Serious: Yes (Other)
  Sender: FDA-Public Use
  Company Number: US-JNJCH-2009031657

PATIENT
  Sex: Female

DRUGS (1)
  1. ASPIRIN [Suspect]
     Indication: SUICIDE ATTEMPT
     Dosage: TEXT:15-18 GRAMS
     Route: 048

REACTIONS (3)
  - DRUG EXPOSURE DURING PREGNANCY [None]
  - THERAPEUTIC AGENT TOXICITY [None]
  - VOMITING [None]
